FAERS Safety Report 13563812 (Version 1)
Quarter: 2017Q2

REPORT INFORMATION
  Report Type: Spontaneous
  Country: GB (occurrence: GB)
  Receive Date: 20170519
  Receipt Date: 20170519
  Transmission Date: 20170830
  Serious: Yes (Other)
  Sender: FDA-Public Use
  Company Number: GB-TEVA-767262ACC

PATIENT
  Age: 34 Year
  Sex: Female
  Weight: 94 kg

DRUGS (10)
  1. ZOLMITRIPTAN. [Concomitant]
     Active Substance: ZOLMITRIPTAN
     Indication: MIGRAINE
     Dosage: TAKE ONE OR TWO AT START OF MIGRAINE
     Dates: start: 20160606, end: 20170222
  2. OMEPRAZOLE. [Concomitant]
     Active Substance: OMEPRAZOLE
     Indication: PROPHYLAXIS AGAINST GASTROINTESTINAL ULCER
     Dosage: 1 DOSAGE FORMS DAILY;
     Dates: start: 20160606, end: 20170222
  3. DERMOL [Concomitant]
     Active Substance: BENZALKONIUM CHLORIDE\CHLORHEXIDINE HYDROCHLORIDE\ISOPROPYL MYRISTATE\PARAFFIN
     Dosage: USE AS DIRECTED
     Dates: start: 20150430
  4. IBUPROFEN. [Concomitant]
     Active Substance: IBUPROFEN
     Indication: PAIN
     Dosage: 3 DOSAGE FORMS DAILY;
     Dates: start: 20160818, end: 20170210
  5. SERTRALINE [Concomitant]
     Active Substance: SERTRALINE HYDROCHLORIDE
     Dosage: .25 DOSAGE FORMS DAILY; EVERY OTHER NIGHT
     Dates: start: 20170210, end: 20170407
  6. DESOGESTREL [Concomitant]
     Active Substance: DESOGESTREL
     Indication: CONTRACEPTION
     Dosage: 1 DOSAGE FORMS DAILY;
     Dates: start: 20170322
  7. NAPROXEN. [Concomitant]
     Active Substance: NAPROXEN
  8. CITALOPRAM [Suspect]
     Active Substance: CITALOPRAM HYDROBROMIDE
     Dates: start: 20170322
  9. DIPROBASE [Concomitant]
     Active Substance: CHLOROCRESOL
     Dates: start: 20150430
  10. AMOXICILLIN. [Concomitant]
     Active Substance: AMOXICILLIN
     Dosage: 3 DOSAGE FORMS DAILY;
     Dates: start: 20170425

REACTIONS (1)
  - Polymenorrhagia [Not Recovered/Not Resolved]

NARRATIVE: CASE EVENT DATE: 20170426
